FAERS Safety Report 5291895-0 (Version None)
Quarter: 2007Q2

REPORT INFORMATION
  Report Type: 
  Country: None (occurrence: None)
  Receive Date: 20070403
  Receipt Date: 20070322
  Transmission Date: 20071010
  Serious: Yes (Other)
  Sender: FDA-Public Use
  Company Number: 239074

PATIENT
  Age: 83 Year
  Sex: Female
  Weight: 77.1 kg

DRUGS (8)
  1. LUCENTIS [Suspect]
     Indication: MACULAR DEGENERATION
     Dosage: 1/MONTH, INTRAVITREAL
     Dates: start: 20061201
  2. AVAPRO [Concomitant]
  3. ATENOLOL [Concomitant]
  4. MAXZIDE [Concomitant]
  5. SYNTHROID [Concomitant]
  6. CENTRUM SILVER (MINERALS NOS, MULTIVITAMINS NOS) [Concomitant]
  7. LUTEIN (LUTEIN) [Concomitant]
  8. OS-CAL (CALCIUM CARBONATE) [Concomitant]

REACTIONS (2)
  - EYE HAEMORRHAGE [None]
  - VISUAL ACUITY REDUCED [None]
